FAERS Safety Report 7496068-9 (Version None)
Quarter: 2011Q2

REPORT INFORMATION
  Report Type: 
  Country: None (occurrence: None)
  Receive Date: 20110523
  Receipt Date: 20100630
  Transmission Date: 20111010
  Serious: Yes (Other)
  Sender: FDA-Public Use
  Company Number: US-PFIZER INC-2010081745

PATIENT
  Sex: Female

DRUGS (2)
  1. NEOSPORIN [Suspect]
     Dosage: UNK
  2. FLAGYL [Suspect]
     Dosage: UNK

REACTIONS (1)
  - ANAPHYLACTIC REACTION [None]
